FAERS Safety Report 6404836-7 (Version None)
Quarter: 2009Q4

REPORT INFORMATION
  Report Type: 
  Country: None (occurrence: None)
  Receive Date: 20091016
  Receipt Date: 20091008
  Transmission Date: 20100525
  Serious: Yes (Hospitalization, Other)
  Sender: FDA-Public Use
  Company Number: NZ-AMGEN-US333549

PATIENT
  Sex: Female

DRUGS (4)
  1. ENBREL [Suspect]
     Indication: JUVENILE ARTHRITIS
     Dosage: 38MG WEEKLY
     Route: 058
     Dates: start: 20080401, end: 20090115
  2. NAPROXEN [Concomitant]
     Dosage: 500MG DAILY
     Route: 048
     Dates: start: 20070101
  3. FOLIC ACID [Concomitant]
     Dosage: 5MG WEEKLY
     Route: 048
     Dates: start: 20040101
  4. PREDNISONE [Concomitant]
     Dosage: 5MG DAILY
     Route: 048
     Dates: start: 20050101

REACTIONS (1)
  - ENCEPHALITIS [None]
